FAERS Safety Report 20675927 (Version 3)
Quarter: 2022Q2

REPORT INFORMATION
  Report Type: Spontaneous
  Country: US (occurrence: US)
  Receive Date: 20220405
  Receipt Date: 20220509
  Transmission Date: 20220721
  Serious: Yes (Other)
  Sender: FDA-Public Use
  Company Number: US-BAYER-2022A045326

PATIENT
  Age: 29 Year
  Sex: Female

DRUGS (1)
  1. MIRENA [Suspect]
     Active Substance: LEVONORGESTREL
     Indication: Contraception
     Dosage: 20?G/DAY
     Route: 015
     Dates: start: 20190412, end: 20220321

REACTIONS (4)
  - Device breakage [None]
  - Genital haemorrhage [Recovered/Resolved]
  - Device expulsion [Recovered/Resolved]
  - Medical device pain [Recovered/Resolved]

NARRATIVE: CASE EVENT DATE: 20220321
